FAERS Safety Report 24593125 (Version 1)
Quarter: 2024Q4

REPORT INFORMATION
  Report Type: Spontaneous
  Country: US (occurrence: None)
  Receive Date: 20241107
  Receipt Date: 20241107
  Transmission Date: 20250114
  Serious: Yes (Life-Threatening)
  Sender: Public
  Company Number: None

PATIENT
  Age: 62 Year
  Sex: Male

DRUGS (2)
  1. MIDAZOLAM HYDROCHLORIDE [Suspect]
     Active Substance: MIDAZOLAM HYDROCHLORIDE
     Indication: Colonoscopy
     Dates: start: 20240702, end: 20240702
  2. FENTANYL CITRATE [Suspect]
     Active Substance: FENTANYL CITRATE
     Dates: start: 20240702, end: 20240702

REACTIONS (5)
  - Respiratory depression [None]
  - Procedural complication [None]
  - Oxygen saturation decreased [None]
  - Procedure aborted [None]
  - Therapeutic product effect delayed [None]

NARRATIVE: CASE EVENT DATE: 20240702
